FAERS Safety Report 7290505-0 (Version None)
Quarter: 2011Q1

REPORT INFORMATION
  Report Type: 
  Country: None (occurrence: None)
  Receive Date: 20110214
  Receipt Date: 20110210
  Transmission Date: 20110831
  Serious: Yes (Death, Other)
  Sender: FDA-Public Use
  Company Number: US-PFIZER INC-2011030318

PATIENT
  Sex: Female

DRUGS (2)
  1. ARTHROTEC [Suspect]
     Dosage: 75 MG, UNK
     Route: 048
     Dates: start: 20110113
  2. LIDODERM [Suspect]
     Dosage: UNK
     Dates: start: 20110113

REACTIONS (2)
  - MYOCARDIAL INFARCTION [None]
  - FLATULENCE [None]
